FAERS Safety Report 5802287-7 (Version None)
Quarter: 2008Q3

REPORT INFORMATION
  Report Type: 
  Country: None (occurrence: None)
  Receive Date: 20080707
  Receipt Date: 20080627
  Transmission Date: 20090109
  Serious: Yes (Other)
  Sender: FDA-Public Use
  Company Number: JP-ROCHE-564110

PATIENT
  Sex: Male

DRUGS (2)
  1. CEFTRIAXONE [Suspect]
     Indication: PNEUMONIA
     Dosage: ROUTE REPORTED AS INTRAVENOUS (NOS).
     Route: 042
     Dates: start: 20070629, end: 20070704
  2. MEROPEN [Concomitant]
     Indication: PNEUMONIA
     Dates: start: 20070704, end: 20070717

REACTIONS (1)
  - TOXIC SKIN ERUPTION [None]
